FAERS Safety Report 19598719 (Version 1)
Quarter: 2021Q3

REPORT INFORMATION
  Report Type: Spontaneous
  Country: US (occurrence: US)
  Receive Date: 20210723
  Receipt Date: 20210723
  Transmission Date: 20211014
  Serious: No
  Sender: FDA-Public Use
  Company Number: US-ASTRAZENECA-2021A559886

PATIENT
  Sex: Female

DRUGS (1)
  1. FASENRA [Suspect]
     Active Substance: BENRALIZUMAB
     Indication: EOSINOPHIL COUNT INCREASED
     Dosage: ONCE A MONTH INJECTION FOR FIRST 3 MONTHS, THEN EVERY OTHER MONTH
     Route: 058

REACTIONS (5)
  - Swelling [Unknown]
  - Pruritus [Unknown]
  - Skin warm [Unknown]
  - Erythema [Unknown]
  - Rash macular [Unknown]
